FAERS Safety Report 10914737 (Version 1)
Quarter: 2015Q1

REPORT INFORMATION
  Report Type: Spontaneous
  Country: BR (occurrence: BR)
  Receive Date: 20150313
  Receipt Date: 20150313
  Transmission Date: 20150721
  Serious: Yes (Hospitalization, Disabling, Other)
  Sender: FDA-Public Use
  Company Number: BR-ASTRAZENECA-2015SE22232

PATIENT
  Age: 70 Year
  Sex: Female
  Weight: 43 kg

DRUGS (8)
  1. SYMBICORT [Suspect]
     Active Substance: BUDESONIDE\FORMOTEROL FUMARATE DIHYDRATE
     Indication: BRONCHITIS
     Dosage: 320/9 MCG DAILY
     Route: 055
     Dates: start: 2015, end: 201502
  2. SELOZOK [Suspect]
     Active Substance: METOPROLOL SUCCINATE
     Indication: CARDIAC FIBRILLATION
     Route: 048
     Dates: start: 2014, end: 20150303
  3. DIGOXIN. [Suspect]
     Active Substance: DIGOXIN
     Indication: CARDIAC FIBRILLATION
     Route: 048
     Dates: start: 2014, end: 201412
  4. SYMBICORT [Suspect]
     Active Substance: BUDESONIDE\FORMOTEROL FUMARATE DIHYDRATE
     Indication: BRONCHITIS
     Dosage: 320/9 MCG DAILY
     Route: 055
     Dates: start: 20150305
  5. SELOZOK [Suspect]
     Active Substance: METOPROLOL SUCCINATE
     Indication: CARDIAC FIBRILLATION
     Route: 048
     Dates: start: 20150304
  6. MAREVAN [Concomitant]
     Active Substance: WARFARIN SODIUM
     Indication: ANTICOAGULANT THERAPY
     Route: 048
     Dates: start: 2014
  7. SYMBICORT [Suspect]
     Active Substance: BUDESONIDE\FORMOTEROL FUMARATE DIHYDRATE
     Indication: BRONCHITIS
     Dosage: 320/9 MCG TWO TIMES A DAY
     Route: 055
     Dates: start: 1999, end: 2015
  8. LEVOID [Concomitant]
     Active Substance: LEVOTHYROXINE
     Indication: HYPOTHYROIDISM
     Route: 048

REACTIONS (14)
  - Cerebral ischaemia [Recovered/Resolved with Sequelae]
  - Weight decreased [Not Recovered/Not Resolved]
  - Fear [Recovered/Resolved]
  - Off label use [Not Recovered/Not Resolved]
  - Intentional product misuse [Recovered/Resolved]
  - Cardiac fibrillation [Not Recovered/Not Resolved]
  - Intestinal perforation [Recovered/Resolved]
  - Oesophageal achalasia [Recovered/Resolved with Sequelae]
  - Dyspnoea [Recovering/Resolving]
  - Depression [Recovered/Resolved]
  - Ovarian cyst [Recovered/Resolved]
  - Hypothyroidism [Not Recovered/Not Resolved]
  - Visual acuity reduced [Recovering/Resolving]
  - Feeding disorder [Not Recovered/Not Resolved]

NARRATIVE: CASE EVENT DATE: 2004
